FAERS Safety Report 21009053 (Version 2)
Quarter: 2022Q2

REPORT INFORMATION
  Report Type: Other
  Country: CA (occurrence: CA)
  Receive Date: 20220627
  Receipt Date: 20220629
  Transmission Date: 20220721
  Serious: Yes (Other)
  Sender: FDA-Public Use
  Company Number: CA-APOTEX-2022AP009585

PATIENT
  Age: 63 Year
  Sex: Male
  Weight: 63 kg

DRUGS (4)
  1. APO-VARENICLINE [Suspect]
     Active Substance: VARENICLINE TARTRATE
     Indication: Smoking cessation therapy
     Dosage: 0.5 MILLIGRAM, BID
     Route: 048
  2. APO-VARENICLINE [Suspect]
     Active Substance: VARENICLINE TARTRATE
     Dosage: 0.5 MILLIGRAM, QD
     Route: 048
  3. ROSUVASTATIN [Concomitant]
     Active Substance: ROSUVASTATIN
     Indication: Product used for unknown indication
     Dosage: UNK
     Route: 058
  4. TAMSULOSIN [Concomitant]
     Active Substance: TAMSULOSIN
     Indication: Product used for unknown indication
     Dosage: UNK
     Route: 065

REACTIONS (6)
  - Haemorrhage urinary tract [Recovered/Resolved]
  - Pollakiuria [Recovered/Resolved]
  - Urinary hesitation [Recovered/Resolved]
  - Urinary sediment [Recovered/Resolved]
  - Urinary tract discomfort [Recovered/Resolved]
  - Sleep disorder [Recovered/Resolved]
